FAERS Safety Report 9417204 (Version 3)
Quarter: 2013Q4

REPORT INFORMATION
  Report Type: Spontaneous
  Country: US (occurrence: US)
  Receive Date: 20130724
  Receipt Date: 20131126
  Transmission Date: 20140711
  Serious: Yes (Hospitalization, Other)
  Sender: FDA-Public Use
  Company Number: US-009507513-1206USA02279

PATIENT
  Sex: Female
  Weight: 48.53 kg

DRUGS (5)
  1. FOSAMAX [Suspect]
     Indication: OSTEOPENIA
     Dosage: 35 MG, QW
     Route: 048
     Dates: start: 200312
  2. FOSAMAX [Suspect]
     Dosage: 70 MG, QW
     Route: 048
     Dates: start: 200312, end: 200712
  3. FOSAMAX [Suspect]
     Route: 048
  4. FOSAMAX PLUS D [Suspect]
     Indication: OSTEOPENIA
     Dosage: 70 MG, UNK
     Route: 048
     Dates: start: 200801, end: 200810
  5. ALENDRONATE SODIUM [Suspect]
     Indication: OSTEOPENIA
     Dosage: 70 MG, QW
     Dates: start: 200810, end: 201006

REACTIONS (28)
  - Femur fracture [Unknown]
  - Femur fracture [Unknown]
  - Open reduction of fracture [Unknown]
  - Open reduction of fracture [Unknown]
  - Breast cancer [Unknown]
  - Breast lump removal [Unknown]
  - Low turnover osteopathy [Unknown]
  - Osteoporosis [Not Recovered/Not Resolved]
  - Psoriasis [Unknown]
  - Biopsy breast [Unknown]
  - Spinal osteoarthritis [Unknown]
  - Biopsy pharynx [Unknown]
  - Adrenal adenoma [Unknown]
  - Radiculopathy [Unknown]
  - Intervertebral disc protrusion [Unknown]
  - Spondylolysis [Unknown]
  - Spondylolisthesis [Unknown]
  - Thyroid neoplasm [Unknown]
  - Haemorrhoid operation [Unknown]
  - Dystonia [Unknown]
  - Goitre [Unknown]
  - Torticollis [Unknown]
  - Bursitis [Unknown]
  - Varicella [Unknown]
  - Muscle spasms [Unknown]
  - Joint swelling [Unknown]
  - Back pain [Unknown]
  - Dysphagia [Unknown]
